FAERS Safety Report 4510769-3 (Version None)
Quarter: 2004Q4

REPORT INFORMATION
  Report Type: 
  Country: None (occurrence: None)
  Receive Date: 20041124
  Receipt Date: 20041029
  Transmission Date: 20050328
  Serious: Yes (Life-Threatening, Hospitalization, Other)
  Sender: FDA-Public Use
  Company Number: IE-MERCK-0411GBR00003

PATIENT
  Age: 69 Year
  Sex: Female
  Weight: 51 kg

DRUGS (6)
  1. FOSAMAX [Suspect]
     Indication: OSTEOPOROSIS
     Route: 048
     Dates: start: 20041007, end: 20041007
  2. ETORICOXIB [Suspect]
     Route: 065
     Dates: start: 20040830
  3. ALFACALCIDOL [Concomitant]
     Route: 065
  4. FOLIC ACID [Concomitant]
     Route: 065
  5. CALCIUM CARBONATE AND CHOLECALCIFEROL [Concomitant]
     Route: 065
  6. ACETAMINOPHEN AND CARBINOXAMINE MALEATE AND PHENYLEPHRINE HYDROCHLORID [Concomitant]
     Route: 065

REACTIONS (2)
  - DUODENAL ULCER PERFORATION [None]
  - FEELING ABNORMAL [None]
